FAERS Safety Report 25124424 (Version 2)
Quarter: 2025Q3

REPORT INFORMATION
  Report Type: Spontaneous
  Country: US (occurrence: US)
  Receive Date: 20250326
  Receipt Date: 20250709
  Transmission Date: 20251020
  Serious: Yes (Other)
  Sender: JOHNSON AND JOHNSON
  Company Number: US-JNJFOC-20250346756

PATIENT
  Age: 63 Year
  Sex: Female

DRUGS (1)
  1. TALVEY [Suspect]
     Active Substance: TALQUETAMAB-TGVS
     Indication: Plasma cell myeloma

REACTIONS (4)
  - Cytokine release syndrome [Unknown]
  - Cytopenia [Unknown]
  - Dysgeusia [Unknown]
  - Nail disorder [Recovered/Resolved]
